FAERS Safety Report 13504252 (Version 3)
Quarter: 2017Q3

REPORT INFORMATION
  Report Type: Spontaneous
  Country: US (occurrence: US)
  Receive Date: 20170502
  Receipt Date: 20170809
  Transmission Date: 20171127
  Serious: Yes (Death, Other)
  Sender: FDA-Public Use
  Company Number: US-PFIZER INC-2017192068

PATIENT
  Age: 92 Year
  Sex: Female
  Weight: 66.68 kg

DRUGS (1)
  1. LYRICA [Suspect]
     Active Substance: PREGABALIN
     Indication: DIABETIC NEUROPATHY
     Dosage: 150 MG, 2X/DAY

REACTIONS (5)
  - Foot fracture [Unknown]
  - Cardiac failure [Fatal]
  - Hypoacusis [Unknown]
  - Renal failure [Fatal]
  - Atrial fibrillation [Fatal]
